FAERS Safety Report 7508083-7 (Version None)
Quarter: 2011Q2

REPORT INFORMATION
  Report Type: 
  Country: None (occurrence: None)
  Receive Date: 20110527
  Receipt Date: 20110321
  Transmission Date: 20111010
  Serious: Yes (Hospitalization, Disabling)
  Sender: FDA-Public Use
  Company Number: US-BAYER-2011-004045

PATIENT
  Age: 34 Year
  Sex: Female
  Weight: 100 kg

DRUGS (8)
  1. DROSPIRENONE AND ETHINYL ESTRADIOL [Suspect]
     Indication: PRODUCT USED FOR UNKNOWN INDICATION
  2. NSAID'S [Concomitant]
  3. FUROSEMIDE [Concomitant]
     Dosage: 20 MG, UNK
     Dates: start: 20060801
  4. DICYCLOMINE [Concomitant]
     Dosage: 10 MG, UNK
     Dates: start: 20060901
  5. YAZ [Suspect]
     Indication: PRODUCT USED FOR UNKNOWN INDICATION
  6. AZITHROMYCIN [Concomitant]
     Dosage: 500 MG, UNK
     Dates: start: 20060801
  7. OMEPRAZOLE [Concomitant]
     Dosage: 10 MG, UNK
     Dates: start: 20060901
  8. YASMIN [Suspect]
     Indication: PRODUCT USED FOR UNKNOWN INDICATION

REACTIONS (4)
  - CHOLECYSTITIS ACUTE [None]
  - GALLBLADDER DISORDER [None]
  - CHOLELITHIASIS [None]
  - EMOTIONAL DISTRESS [None]
